FAERS Safety Report 18956542 (Version 1)
Quarter: 2021Q1

REPORT INFORMATION
  Report Type: Spontaneous
  Country: NO (occurrence: NO)
  Receive Date: 20210301
  Receipt Date: 20210301
  Transmission Date: 20210420
  Serious: Yes (Hospitalization, Disabling)
  Sender: FDA-Public Use
  Company Number: NO-JNJFOC-20210244014

PATIENT
  Age: 59 Year
  Sex: Male

DRUGS (1)
  1. REMICADE [Suspect]
     Active Substance: INFLIXIMAB
     Indication: CROHN^S DISEASE
     Dosage: TREATED WITH BOTH REMICADE, REMSIMA AND LASTLY ZESSLY?DRUG LAST PERIOD: 2 MONTHS
     Route: 042
     Dates: start: 20070516, end: 20200428

REACTIONS (4)
  - Hodgkin^s disease [Recovering/Resolving]
  - Product use issue [Unknown]
  - Off label use [Unknown]
  - Epstein-Barr virus infection [Unknown]

NARRATIVE: CASE EVENT DATE: 20070516
